FAERS Safety Report 8590123-8 (Version None)
Quarter: 2012Q3

REPORT INFORMATION
  Report Type: 
  Country: None (occurrence: None)
  Receive Date: 20120813
  Receipt Date: 19920526
  Transmission Date: 20120928
  Serious: Yes (Other)
  Sender: FDA-Public Use
  Company Number: US-ROCHE-1100461

PATIENT
  Age: 62 Year
  Sex: Female

DRUGS (3)
  1. HEPARIN [Concomitant]
  2. LIDOCAINE [Concomitant]
  3. ACTIVASE [Suspect]
     Indication: ACUTE MYOCARDIAL INFARCTION

REACTIONS (2)
  - HYPOTENSION [None]
  - CHEST PAIN [None]
